FAERS Safety Report 6073407-7 (Version None)
Quarter: 2009Q1

REPORT INFORMATION
  Report Type: 
  Country: None (occurrence: None)
  Receive Date: 20090211
  Receipt Date: 20090202
  Transmission Date: 20090719
  Serious: Yes (Other)
  Sender: FDA-Public Use
  Company Number: US-BIOGENIDEC-2009BI003965

PATIENT
  Age: 26 Year
  Sex: Female

DRUGS (2)
  1. TYSABRI [Suspect]
     Indication: MULTIPLE SCLEROSIS
     Route: 042
     Dates: start: 20081215
  2. DEPO-PROVERA [Concomitant]
     Indication: CONTRACEPTION

REACTIONS (8)
  - BLOOD URINE PRESENT [None]
  - CONTUSION [None]
  - FALL [None]
  - HAEMATOCHEZIA [None]
  - MOBILITY DECREASED [None]
  - OEDEMA PERIPHERAL [None]
  - PHARYNGEAL HAEMORRHAGE [None]
  - SENSATION OF HEAVINESS [None]
